FAERS Safety Report 15694447 (Version 6)
Quarter: 2019Q3

REPORT INFORMATION
  Report Type: Report from Study
  Country: BE (occurrence: BE)
  Receive Date: 20181206
  Receipt Date: 20190717
  Transmission Date: 20191004
  Serious: Yes (Hospitalization)
  Sender: FDA-Public Use
  Company Number: PHHO2018BE012890

PATIENT
  Age: 24 Year
  Sex: Female
  Weight: 86.3 kg

DRUGS (23)
  1. LITICAN [Concomitant]
     Active Substance: ALIZAPRIDE HYDROCHLORIDE
     Indication: NAUSEA
     Dosage: UNK
     Route: 065
     Dates: start: 20180813, end: 20181121
  2. CIPROXINE [Concomitant]
     Active Substance: CIPROFLOXACIN
     Indication: PROPHYLAXIS
     Dosage: UNK
     Route: 065
     Dates: start: 20181109, end: 20181111
  3. PIRITRAMIDE [Concomitant]
     Active Substance: PIRITRAMIDE
     Indication: STREPTOCOCCAL SEPSIS
     Dosage: UNK
     Route: 065
     Dates: start: 20181112, end: 20181114
  4. NIVESTIM [Concomitant]
     Active Substance: FILGRASTIM
     Indication: STREPTOCOCCAL SEPSIS
     Dosage: UNK
     Route: 065
     Dates: start: 20181115, end: 20181118
  5. FLUOROMETHOLON [Concomitant]
     Indication: EYE IRRITATION
     Dosage: UNK
     Route: 065
     Dates: start: 20181029, end: 20181031
  6. ONDANSETRON [Concomitant]
     Active Substance: ONDANSETRON
     Indication: NAUSEA
     Dosage: UNK
     Route: 065
     Dates: start: 20181112, end: 20181115
  7. TEMESTA [Concomitant]
     Indication: NAUSEA
     Dosage: UNK
     Route: 065
     Dates: start: 20181031, end: 20181101
  8. ONDANSETRON [Concomitant]
     Active Substance: ONDANSETRON
     Indication: STREPTOCOCCAL SEPSIS
     Dosage: UNK
     Route: 065
     Dates: start: 20181029, end: 20181111
  9. PARACETAMOL [Concomitant]
     Active Substance: ACETAMINOPHEN
     Indication: STREPTOCOCCAL SEPSIS
     Dosage: UNK
     Route: 065
     Dates: start: 20181111, end: 20181116
  10. TOBRADEX [Concomitant]
     Active Substance: DEXAMETHASONE\TOBRAMYCIN
     Indication: EYE IRRITATION
     Dosage: UNK
     Route: 065
     Dates: start: 20181010, end: 20181210
  11. IMODIUM [Concomitant]
     Active Substance: LOPERAMIDE HYDROCHLORIDE
     Indication: DIARRHOEA
     Dosage: UNK
     Route: 065
     Dates: start: 20181102, end: 20181102
  12. NOXAFIL [Concomitant]
     Active Substance: POSACONAZOLE
     Indication: PROPHYLAXIS
     Dosage: UNK
     Route: 065
     Dates: start: 20181109, end: 20181117
  13. LASIX [Concomitant]
     Active Substance: FUROSEMIDE
     Indication: OEDEMA
     Dosage: UNK
     Route: 065
     Dates: start: 20181112, end: 20181118
  14. CLINDAMYCIN. [Concomitant]
     Active Substance: CLINDAMYCIN
     Indication: STREPTOCOCCAL SEPSIS
     Dosage: UNK
     Route: 065
     Dates: start: 20181114, end: 20181121
  15. PANTOMED (DEXPANTHENOL) [Concomitant]
     Active Substance: DEXPANTHENOL
     Indication: PROPHYLAXIS
     Dosage: UNK
     Route: 065
     Dates: start: 20180816
  16. VANCOMYCINE [Concomitant]
     Active Substance: VANCOMYCIN
     Indication: SEPSIS
     Dosage: UNK
     Route: 065
     Dates: start: 20181112, end: 20181115
  17. TPN [Concomitant]
     Active Substance: AMINO ACIDS\DEXTROSE\ELECTROLYTES NOS\SOYBEAN OIL
     Indication: DECREASED APPETITE
     Route: 065
     Dates: start: 20181115, end: 20181121
  18. COMPARATOR IDARUBICIN [Suspect]
     Active Substance: IDARUBICIN
     Indication: ACUTE MYELOID LEUKAEMIA
     Dosage: 20 MG/M2, QD
     Route: 042
     Dates: start: 20180815
  19. PARACETAMOL [Concomitant]
     Active Substance: ACETAMINOPHEN
     Indication: FEBRILE NEUTROPENIA
     Dosage: UNK
     Route: 065
     Dates: start: 20180901, end: 20190211
  20. CEFEPIM [Concomitant]
     Active Substance: CEFEPIME HYDROCHLORIDE
     Indication: STREPTOCOCCAL SEPSIS
     Dosage: UNK
     Route: 065
     Dates: start: 20181111, end: 20181117
  21. CGP 41251 [Suspect]
     Active Substance: MIDOSTAURIN
     Indication: ACUTE MYELOID LEUKAEMIA
     Dosage: 50 MG, BID
     Route: 048
     Dates: start: 20180822
  22. COMPARATOR CYTARABINE [Suspect]
     Active Substance: CYTARABINE
     Indication: ACUTE MYELOID LEUKAEMIA
     Dosage: 150 MG/M2, QD
     Route: 042
     Dates: start: 20180815
  23. CLONIDINE. [Concomitant]
     Active Substance: CLONIDINE
     Indication: HYPERTENSION
     Dosage: UNK
     Route: 065
     Dates: start: 20181115, end: 20181115

REACTIONS (1)
  - Subarachnoid haemorrhage [Recovered/Resolved]

NARRATIVE: CASE EVENT DATE: 20181111
